FAERS Safety Report 13922693 (Version 1)
Quarter: 2017Q3

REPORT INFORMATION
  Report Type: Spontaneous
  Country: None (occurrence: FR)
  Receive Date: 20170830
  Receipt Date: 20170830
  Transmission Date: 20171127
  Serious: Yes (Hospitalization)
  Sender: FDA-Public Use
  Company Number: FR-MEDAC PHARMA, INC.-2025335

PATIENT
  Age: 73 Year
  Sex: Female

DRUGS (6)
  1. METOJECT [Suspect]
     Active Substance: METHOTREXATE SODIUM
     Route: 058
     Dates: start: 2013, end: 20150512
  2. METHOTREXATE. [Suspect]
     Active Substance: METHOTREXATE
     Dates: start: 1996, end: 1997
  3. METOJECT [Suspect]
     Active Substance: METHOTREXATE SODIUM
     Route: 058
     Dates: start: 2006, end: 2013
  4. ENBREL [Suspect]
     Active Substance: ETANERCEPT
     Dates: start: 20160303, end: 201707
  5. SPECIAFOLDINE [Concomitant]
     Active Substance: FOLIC ACID
     Dates: start: 2006
  6. ENBREL [Suspect]
     Active Substance: ETANERCEPT
     Route: 058
     Dates: start: 201410, end: 20150721

REACTIONS (1)
  - Basal cell carcinoma [Recovered/Resolved with Sequelae]

NARRATIVE: CASE EVENT DATE: 201706
